FAERS Safety Report 7470858-0 (Version None)
Quarter: 2011Q2

REPORT INFORMATION
  Report Type: 
  Country: None (occurrence: None)
  Receive Date: 20110502
  Receipt Date: 20110422
  Transmission Date: 20111010
  Serious: Yes (Death, Hospitalization)
  Sender: FDA-Public Use
  Company Number: 2011001810

PATIENT
  Age: 56 Year
  Sex: Female
  Weight: 64.5 kg

DRUGS (3)
  1. SORAFENIB [Suspect]
     Indication: GALLBLADDER CANCER
     Dosage: (400 MG,BID),ORAL
     Route: 048
     Dates: start: 20110331, end: 20110411
  2. ERLOTINIB HYDROCHLORIDE [Suspect]
     Indication: GALLBLADDER CANCER
     Dosage: (100 MG,QD),ORAL
     Route: 048
     Dates: start: 20110331, end: 20110410
  3. DECADRON [Suspect]
     Indication: PAIN

REACTIONS (11)
  - HYPONATRAEMIA [None]
  - BLOOD ALBUMIN DECREASED [None]
  - ANAEMIA [None]
  - BLOOD BILIRUBIN INCREASED [None]
  - GASTRIC PERFORATION [None]
  - THROMBOCYTOPENIA [None]
  - HYPERHIDROSIS [None]
  - HYPOCALCAEMIA [None]
  - BLOOD PHOSPHORUS DECREASED [None]
  - MUSCULAR WEAKNESS [None]
  - NAUSEA [None]
